FAERS Safety Report 16033144 (Version 2)
Quarter: 2019Q1

REPORT INFORMATION
  Report Type: Report from Study
  Country: DE (occurrence: DE)
  Receive Date: 20190305
  Receipt Date: 20190328
  Transmission Date: 20190418
  Serious: Yes (Hospitalization, Other)
  Sender: FDA-Public Use
  Company Number: DE-ACCORD-110442

PATIENT
  Age: 79 Year
  Sex: Female
  Weight: 67 kg

DRUGS (18)
  1. ACETYLSALICYLIC ACID [Suspect]
     Active Substance: ASPIRIN
     Indication: CORONARY ARTERY DISEASE
     Dosage: 100 MG (DAILY DOSE), , ORAL
     Route: 048
     Dates: start: 20000130, end: 20000227
  2. DIAZEPAM. [Suspect]
     Active Substance: DIAZEPAM
     Indication: SEIZURE
     Route: 042
     Dates: start: 20000218, end: 20000225
  3. AMLODIPINE [Suspect]
     Active Substance: AMLODIPINE BESYLATE
     Indication: CORONARY ARTERY DISEASE
     Dosage: 5 MG (DAILY DOSE), , ORAL
     Route: 048
     Dates: end: 20000220
  4. ISOSORBIDE DINITRATE. [Suspect]
     Active Substance: ISOSORBIDE DINITRATE
     Indication: CORONARY ARTERY DISEASE
     Dosage: 1 DF (DAILY DOSE), , ORAL
     Route: 048
     Dates: end: 20000218
  5. TEGRETAL [Suspect]
     Active Substance: CARBAMAZEPINE
     Indication: SEIZURE
     Dosage: 600 MG (DAILY DOSE), , ORAL
     Route: 048
     Dates: start: 20000125, end: 20000224
  6. LASIX [Suspect]
     Active Substance: FUROSEMIDE
     Indication: CORONARY ARTERY DISEASE
     Route: 048
     Dates: start: 20000225
  7. FURORESE [Suspect]
     Active Substance: FUROSEMIDE
     Indication: OEDEMA
     Route: 048
     Dates: start: 20000218, end: 20000224
  8. FUROSEMIDE. [Suspect]
     Active Substance: FUROSEMIDE
     Indication: OEDEMA
     Dosage: 40 MG (DAILY DOSE), , ORAL
     Route: 048
     Dates: start: 20000130, end: 20000218
  9. CORANGIN [Suspect]
     Active Substance: ISOSORBIDE MONONITRATE
     Indication: CORONARY ARTERY DISEASE
     Dosage: 1 DF (DAILY DOSE), , ORAL
     Route: 048
     Dates: start: 20000218, end: 20000224
  10. TRAMAL [Suspect]
     Active Substance: TRAMADOL
     Indication: PAIN
     Route: 048
     Dates: start: 20000219, end: 20000223
  11. PARACETAMOL [Concomitant]
     Active Substance: ACETAMINOPHEN
     Indication: PAIN
     Route: 054
     Dates: start: 20000226, end: 20000226
  12. ZANTAC [Suspect]
     Active Substance: RANITIDINE HYDROCHLORIDE
     Indication: GASTRIC ULCER
     Route: 048
     Dates: start: 20000225
  13. ISMO [Suspect]
     Active Substance: ISOSORBIDE MONONITRATE
     Indication: CORONARY ARTERY DISEASE
     Route: 048
     Dates: start: 20000225, end: 20000227
  14. PHENHYDAN [Suspect]
     Active Substance: PHENYTOIN
     Indication: SEIZURE
     Dosage: ALSO TAKEN 26-FEB-2000 TO 27-FEB-2000
     Route: 042
     Dates: start: 20000225, end: 20000226
  15. RIVOTRIL [Suspect]
     Active Substance: CLONAZEPAM
     Indication: SEIZURE
     Route: 042
     Dates: start: 20000224, end: 20000224
  16. LUMINAL [Suspect]
     Active Substance: PHENOBARBITAL SODIUM
     Indication: SEIZURE
     Route: 030
     Dates: start: 20000225, end: 20000227
  17. EUSAPRIM [Suspect]
     Active Substance: SULFAMETHOXAZOLE\TRIMETHOPRIM
     Indication: CYSTITIS
     Dosage: 2 DF (DAILY DOSE), , ORAL
     Route: 048
     Dates: start: 20000226, end: 20000227
  18. RANITIDINE. [Suspect]
     Active Substance: RANITIDINE
     Indication: GASTRIC ULCER
     Dosage: 300 MG (DAILY DOSE), , ORAL
     Route: 048
     Dates: start: 20000218, end: 20000224

REACTIONS (10)
  - Stevens-Johnson syndrome [Recovered/Resolved]
  - Blister [Recovered/Resolved]
  - Mucosal erosion [Recovered/Resolved]
  - Conjunctivitis [Recovered/Resolved]
  - Lip erosion [Recovered/Resolved]
  - Rash macular [Recovered/Resolved]
  - Eyelid oedema [Recovered/Resolved]
  - Pruritus generalised [Recovered/Resolved]
  - Rash erythematous [Recovered/Resolved]
  - Erythema [Recovered/Resolved]

NARRATIVE: CASE EVENT DATE: 20000227
